FAERS Safety Report 19466392 (Version 1)
Quarter: 2021Q2

REPORT INFORMATION
  Report Type: Spontaneous
  Country: US (occurrence: US)
  Receive Date: 20210627
  Receipt Date: 20210627
  Transmission Date: 20210717
  Serious: No
  Sender: FDA-Public Use
  Company Number: US-ASTRAZENECA-2021A493415

PATIENT
  Age: 875 Month
  Sex: Female
  Weight: 81 kg

DRUGS (2)
  1. FASENRA [Suspect]
     Active Substance: BENRALIZUMAB
     Indication: EOSINOPHIL COUNT INCREASED
     Dosage: MONTHLY FOR 3 DOSES LATER BI MONTHLY
     Route: 058
     Dates: start: 20210402
  2. FASENRA [Suspect]
     Active Substance: BENRALIZUMAB
     Indication: ASTHMA
     Dosage: MONTHLY FOR 3 DOSES LATER BI MONTHLY
     Route: 058
     Dates: start: 20210402

REACTIONS (1)
  - Injection site discolouration [Recovering/Resolving]

NARRATIVE: CASE EVENT DATE: 202105
